FAERS Safety Report 20304127 (Version 1)
Quarter: 2022Q1

REPORT INFORMATION
  Report Type: Spontaneous
  Country: US (occurrence: None)
  Receive Date: 20220105
  Receipt Date: 20220105
  Transmission Date: 20220423
  Serious: Yes (Other)
  Sender: FDA-Public Use
  Company Number: None

PATIENT
  Age: 61 Year
  Sex: Male
  Weight: 83.91 kg

DRUGS (1)
  1. NAPROXEN [Suspect]
     Active Substance: NAPROXEN
     Indication: Inflammation
     Dosage: FREQUENCY : TWICE A DAY;?
     Route: 048
     Dates: start: 20201123, end: 20211122

REACTIONS (5)
  - Cerebrovascular accident [None]
  - Pain in extremity [None]
  - Osteomyelitis [None]
  - Acute kidney injury [None]
  - Nephropathy toxic [None]

NARRATIVE: CASE EVENT DATE: 20211122
